FAERS Safety Report 24256542 (Version 3)
Quarter: 2024Q3

REPORT INFORMATION
  Report Type: Spontaneous
  Country: US (occurrence: US)
  Receive Date: 20240828
  Receipt Date: 20240921
  Transmission Date: 20241016
  Serious: Yes (Hospitalization)
  Sender: ROCHE
  Company Number: US-ROCHE-10000066897

PATIENT
  Sex: Male

DRUGS (4)
  1. XOLAIR PFS [Suspect]
     Active Substance: OMALIZUMAB
     Indication: Psoriatic arthropathy
     Route: 058
     Dates: start: 20231202
  2. XOLAIR PFS [Suspect]
     Active Substance: OMALIZUMAB
  3. DUPIXENT [Concomitant]
     Active Substance: DUPILUMAB
  4. OTEZLA [Concomitant]
     Active Substance: APREMILAST

REACTIONS (2)
  - Off label use [Unknown]
  - Myocardial infarction [Unknown]
